FAERS Safety Report 17614447 (Version 4)
Quarter: 2020Q2

REPORT INFORMATION
  Report Type: Report from Study
  Country: US (occurrence: US)
  Receive Date: 20200402
  Receipt Date: 20200625
  Transmission Date: 20200713
  Serious: Yes (Other)
  Sender: FDA-Public Use
  Company Number: US-BRISTOL-MYERS SQUIBB COMPANY-BMS-2020-025990

PATIENT
  Sex: Male

DRUGS (4)
  1. STOOL SOFTENER (DOCUSATE) [Concomitant]
     Active Substance: DOCUSATE
     Indication: PRODUCT USED FOR UNKNOWN INDICATION
     Route: 065
  2. NIVOLUMAB [Suspect]
     Active Substance: NIVOLUMAB
     Indication: MALIGNANT MELANOMA
     Dosage: 480 MILLIGRAM, Q4WK
     Route: 042
  3. XANAX [Concomitant]
     Active Substance: ALPRAZOLAM
     Indication: PRODUCT USED FOR UNKNOWN INDICATION
     Dosage: UNK
     Route: 065
  4. DIFLUCAN [Concomitant]
     Active Substance: FLUCONAZOLE
     Indication: PRODUCT USED FOR UNKNOWN INDICATION
     Route: 065

REACTIONS (29)
  - Decreased appetite [Not Recovered/Not Resolved]
  - Pruritus [Not Recovered/Not Resolved]
  - Panic attack [Unknown]
  - Throat tightness [Unknown]
  - Dyspnoea exertional [Not Recovered/Not Resolved]
  - Tenderness [Unknown]
  - Blister [Unknown]
  - Myalgia [Not Recovered/Not Resolved]
  - Pneumonia [Unknown]
  - Abdominal pain [Unknown]
  - Dyspnoea [Not Recovered/Not Resolved]
  - Fatigue [Recovering/Resolving]
  - Chromaturia [Unknown]
  - Nausea [Recovering/Resolving]
  - Parosmia [Unknown]
  - Dehydration [Unknown]
  - Constipation [Not Recovered/Not Resolved]
  - Seasonal allergy [Unknown]
  - Arthropathy [Unknown]
  - Pain [Not Recovered/Not Resolved]
  - Lip dry [Unknown]
  - Musculoskeletal pain [Unknown]
  - Thirst [Unknown]
  - Urticaria [Not Recovered/Not Resolved]
  - Pyrexia [Recovered/Resolved]
  - Cough [Unknown]
  - Coccidioidomycosis [Unknown]
  - Headache [Unknown]
  - Ageusia [Unknown]
